FAERS Safety Report 18209324 (Version 2)
Quarter: 2020Q4

REPORT INFORMATION
  Report Type: Spontaneous
  Country: CA (occurrence: CA)
  Receive Date: 20200828
  Receipt Date: 20201204
  Transmission Date: 20210113
  Serious: Yes (Hospitalization)
  Sender: FDA-Public Use
  Company Number: CA-ELI_LILLY_AND_COMPANY-CA202008007736

PATIENT
  Sex: Male
  Weight: 81.63 kg

DRUGS (4)
  1. GALCANEZUMAB 120MG [Suspect]
     Active Substance: GALCANEZUMAB
     Dosage: 120 MG, UNKNOWN
     Route: 058
  2. AMITRIPTYLINE [Concomitant]
     Active Substance: AMITRIPTYLINE
     Indication: PRODUCT USED FOR UNKNOWN INDICATION
     Dosage: 50 MG, DAILY
     Route: 065
  3. GALCANEZUMAB 120MG [Suspect]
     Active Substance: GALCANEZUMAB
     Indication: MIGRAINE
     Dosage: 240 MG, SINGLE (LOADING DOSE)
     Route: 058
  4. VORTIOXETINE. [Concomitant]
     Active Substance: VORTIOXETINE
     Indication: PRODUCT USED FOR UNKNOWN INDICATION

REACTIONS (1)
  - Pancreatitis [Recovered/Resolved]
